FAERS Safety Report 8957162 (Version 5)
Quarter: 2013Q3

REPORT INFORMATION
  Report Type: Spontaneous
  Country: JP (occurrence: JP)
  Receive Date: 20121211
  Receipt Date: 20130703
  Transmission Date: 20140515
  Serious: Yes (Other)
  Sender: FDA-Public Use
  Company Number: JP-JNJFOC-20121203763

PATIENT
  Age: 83 Year
  Sex: Male
  Weight: 45 kg

DRUGS (20)
  1. TRAMCET [Suspect]
     Indication: PAIN
     Dosage: ONCE A DAY
     Route: 048
     Dates: start: 20121013, end: 20121019
  2. TRAMCET [Suspect]
     Indication: PAIN
     Dosage: ONCE A DAY
     Route: 048
     Dates: start: 20121011, end: 20121012
  3. TRAMCET [Suspect]
     Indication: PAIN
     Dosage: ONCE A DAY
     Route: 048
     Dates: start: 20121006, end: 20121010
  4. LYRICA [Suspect]
     Indication: PAIN
     Dosage: TWICE A DAY
     Route: 048
  5. LYRICA [Suspect]
     Indication: PAIN
     Dosage: ONCE A DAY
     Route: 048
     Dates: start: 20121013, end: 20130126
  6. LYRICA [Suspect]
     Indication: PAIN
     Dosage: ONCE A DAY
     Route: 048
     Dates: start: 20121011, end: 20121012
  7. LYRICA [Suspect]
     Indication: PAIN
     Dosage: TWICE A DAY
     Route: 048
     Dates: start: 20121004, end: 20121010
  8. DUROTEP MT [Concomitant]
     Indication: PAIN
     Dosage: PER HOUR FOR 3 DAYS
     Route: 062
     Dates: start: 20121019
  9. BASSAMIN GALEN [Concomitant]
     Dosage: ONCE A DAY
     Route: 048
  10. NITOROL R [Concomitant]
     Dosage: ONCE A DAY
     Route: 048
  11. GASRICK D [Concomitant]
     Dosage: ONCE A DAY
     Route: 048
  12. MAGLAX [Concomitant]
     Dosage: ONCE A DAY
     Route: 048
  13. AMLODIPINE [Concomitant]
     Indication: HYPERTENSION
     Dosage: ONCE A DAY
     Route: 048
  14. REBAMIPIDE [Concomitant]
     Dosage: ONCE A DAY
     Route: 048
  15. LOXONIN [Concomitant]
     Dosage: ONCE A DAY
     Route: 048
     Dates: start: 20121005
  16. NEXIUM [Concomitant]
     Dosage: ONCE A DAY
     Route: 048
     Dates: start: 20121005
  17. NAPA [Concomitant]
     Dosage: MAXIMUM 0.5X6 TIMES PER DAY
     Route: 048
     Dates: start: 20121007
  18. CELECOX [Concomitant]
     Dosage: ONCE A DAY
     Route: 048
     Dates: start: 20121011
  19. RIFAMPICIN [Concomitant]
     Route: 048
     Dates: start: 20121013
  20. DILTIAZEM HYDROCHLORIDE [Concomitant]
     Indication: HYPERTENSION
     Dosage: ONCE A DAY
     Route: 048

REACTIONS (3)
  - Delirium [Recovered/Resolved]
  - Inadequate analgesia [Recovering/Resolving]
  - Off label use [Unknown]
